FAERS Safety Report 8454030-3 (Version None)
Quarter: 2012Q2

REPORT INFORMATION
  Report Type: 
  Country: None (occurrence: None)
  Receive Date: 20120620
  Receipt Date: 20120611
  Transmission Date: 20120825
  Serious: Yes (Other)
  Sender: FDA-Public Use
  Company Number: CA-JNJFOC-20120605891

PATIENT
  Sex: Female
  Weight: 60 kg

DRUGS (5)
  1. FOLIC ACID [Concomitant]
     Route: 065
  2. METHOTREXATE [Concomitant]
     Route: 065
  3. ACETAMINOPHEN [Concomitant]
     Route: 065
  4. REMICADE [Suspect]
     Indication: RHEUMATOID ARTHRITIS
     Dosage: FREQUENCY: ONCE PER 6 (ILLEGIBLE).  HAS HAD 87 INFUSIONS
     Route: 042
     Dates: start: 20010101
  5. CELEBREX [Concomitant]
     Route: 065

REACTIONS (2)
  - BLADDER PROLAPSE [None]
  - INTESTINAL PROLAPSE [None]
